FAERS Safety Report 23830055 (Version 2)
Quarter: 2024Q2

REPORT INFORMATION
  Report Type: Spontaneous
  Country: US (occurrence: US)
  Receive Date: 20240508
  Receipt Date: 20240603
  Transmission Date: 20240715
  Serious: Yes (Other)
  Sender: FDA-Public Use
  Company Number: US-TEVA-VS-3193019

PATIENT
  Age: 17 Year
  Sex: Female

DRUGS (3)
  1. ESTRADIOL [Suspect]
     Active Substance: ESTRADIOL
     Indication: Primary hypogonadism
     Route: 048
  2. ETHINYL ESTRADIOL\NORETHINDRONE [Suspect]
     Active Substance: ETHINYL ESTRADIOL\NORETHINDRONE
     Indication: Primary hypogonadism
     Dosage: 1/20 NORETHINDRONE ACETATE/ETHINYL ESTRADIOL
     Route: 048
  3. CONJUGATED ESTROGENS [Suspect]
     Active Substance: ESTROGENS, CONJUGATED
     Indication: Primary hypogonadism
     Dosage: CONJUGATED ESTROGEN
     Route: 048

REACTIONS (1)
  - Change in seizure presentation [Recovering/Resolving]
